FAERS Safety Report 24395120 (Version 1)
Quarter: 2024Q4

REPORT INFORMATION
  Report Type: Spontaneous
  Country: US (occurrence: US)
  Receive Date: 20241004
  Receipt Date: 20241004
  Transmission Date: 20250114
  Serious: Yes (Other)
  Sender: AUROBINDO
  Company Number: US-AUROBINDO-AUR-APL-2024-047548

PATIENT
  Age: 29 Year
  Sex: Male

DRUGS (2)
  1. DANTROLENE SODIUM [Suspect]
     Active Substance: DANTROLENE SODIUM
     Indication: Hyperthermia malignant
     Dosage: 175 MILLIGRAM
     Route: 065
  2. SODIUM BICARBONATE [Suspect]
     Active Substance: SODIUM BICARBONATE
     Indication: Hyperthermia malignant
     Dosage: 150 MILLIGRAM
     Route: 065

REACTIONS (1)
  - Drug ineffective [Unknown]
